FAERS Safety Report 18537775 (Version 3)
Quarter: 2021Q1

REPORT INFORMATION
  Report Type: Spontaneous
  Country: US (occurrence: US)
  Receive Date: 20201123
  Receipt Date: 20210218
  Transmission Date: 20210419
  Serious: Yes (Other)
  Sender: FDA-Public Use
  Company Number: US-SUNOVION-2020SUN003397

PATIENT
  Sex: Male
  Weight: 59 kg

DRUGS (12)
  1. KYNMOBI [Suspect]
     Active Substance: APOMORPHINE HYDROCHLORIDE
     Indication: PRODUCT USED FOR UNKNOWN INDICATION
     Dosage: UNK
     Route: 060
  2. NUPLAZID [Suspect]
     Active Substance: PIMAVANSERIN TARTRATE
     Dosage: 68 MG, QD
     Route: 048
  3. LATANOPROST. [Concomitant]
     Active Substance: LATANOPROST
  4. NUPLAZID [Suspect]
     Active Substance: PIMAVANSERIN TARTRATE
     Indication: PARKINSON^S DISEASE
     Dosage: 34 MG
     Route: 048
     Dates: start: 20170915, end: 20171001
  5. ATIVAN [Suspect]
     Active Substance: LORAZEPAM
     Dosage: PRN
     Route: 065
  6. NUPLAZID [Suspect]
     Active Substance: PIMAVANSERIN TARTRATE
     Dosage: 64 MG, QD
     Route: 048
     Dates: start: 20171002, end: 20171002
  7. ASPIRIN. [Concomitant]
     Active Substance: ASPIRIN
  8. INBRIJA [Suspect]
     Active Substance: LEVODOPA
     Indication: PARKINSON^S DISEASE
     Dosage: 84 MG (UPTO 5 TIMES DAILY)
     Route: 055
     Dates: start: 20190510
  9. ENTACAPONE. [Concomitant]
     Active Substance: ENTACAPONE
  10. ATIVAN [Suspect]
     Active Substance: LORAZEPAM
     Indication: ANXIETY
     Dosage: 0.5 MG PRN
     Route: 065
  11. NUPLAZID [Suspect]
     Active Substance: PIMAVANSERIN TARTRATE
     Dosage: 34 MG, QD
     Route: 048
     Dates: start: 20171004
  12. CARBIDOPA/LEVODOPA [Suspect]
     Active Substance: CARBIDOPA\LEVODOPA
     Indication: PRODUCT USED FOR UNKNOWN INDICATION
     Dosage: 50/200 MG
     Route: 065

REACTIONS (14)
  - Chest pain [Unknown]
  - Hallucination [Recovering/Resolving]
  - Irritability [Unknown]
  - Disorientation [Recovered/Resolved]
  - Fatigue [Unknown]
  - Dyspnoea [Unknown]
  - Suicidal ideation [Recovered/Resolved]
  - Aggression [Unknown]
  - Abnormal behaviour [Recovered/Resolved]
  - Anxiety [Unknown]
  - Abnormal dreams [Recovered/Resolved]
  - Balance disorder [Recovered/Resolved]
  - Amnesia [Recovered/Resolved]
  - Palpitations [Unknown]

NARRATIVE: CASE EVENT DATE: 2017
